FAERS Safety Report 7529964-4 (Version None)
Quarter: 2011Q2

REPORT INFORMATION
  Report Type: 
  Country: None (occurrence: None)
  Receive Date: 20110607
  Receipt Date: 20110527
  Transmission Date: 20111010
  Serious: Yes (Hospitalization, Disabling)
  Sender: FDA-Public Use
  Company Number: US-MERCK-1011USA00404

PATIENT
  Age: 65 Year
  Sex: Female

DRUGS (4)
  1. FOSAMAX [Suspect]
     Route: 048
     Dates: start: 20080901, end: 20091107
  2. BONIVA [Suspect]
     Indication: OSTEOPENIA
     Route: 048
     Dates: start: 20080601, end: 20080801
  3. CYMBALTA [Concomitant]
     Indication: DEPRESSION
     Route: 065
     Dates: start: 20070101
  4. FOSAMAX [Suspect]
     Indication: OSTEOPENIA
     Route: 048
     Dates: start: 20050601, end: 20080601

REACTIONS (9)
  - FOOT DEFORMITY [None]
  - IMPAIRED HEALING [None]
  - FEMUR FRACTURE [None]
  - PAIN IN EXTREMITY [None]
  - GAIT DISTURBANCE [None]
  - BONE DENSITY DECREASED [None]
  - FOOT FRACTURE [None]
  - OSTEOMA [None]
  - GASTROOESOPHAGEAL REFLUX DISEASE [None]
